FAERS Safety Report 11323872 (Version 1)
Quarter: 2015Q3

REPORT INFORMATION
  Report Type: Spontaneous
  Country: CA (occurrence: CA)
  Receive Date: 20150730
  Receipt Date: 20150730
  Transmission Date: 20151125
  Serious: Yes (Other)
  Sender: FDA-Public Use
  Company Number: CA-JNJFOC-20150721434

PATIENT
  Age: 71 Year
  Sex: Male

DRUGS (3)
  1. ASPIRIN. [Suspect]
     Active Substance: ASPIRIN
     Indication: PRODUCT USED FOR UNKNOWN INDICATION
     Route: 065
  2. XARELTO [Suspect]
     Active Substance: RIVAROXABAN
     Indication: PRODUCT USED FOR UNKNOWN INDICATION
     Route: 048
  3. CELEBREX [Concomitant]
     Active Substance: CELECOXIB
     Route: 065

REACTIONS (3)
  - Cerebrovascular accident [Unknown]
  - Gastrointestinal haemorrhage [Unknown]
  - Haemoglobin increased [Unknown]
